FAERS Safety Report 8269026-4 (Version None)
Quarter: 2012Q2

REPORT INFORMATION
  Report Type: 
  Country: None (occurrence: None)
  Receive Date: 20120409
  Receipt Date: 20120330
  Transmission Date: 20120825
  Serious: Yes (Other)
  Sender: FDA-Public Use
  Company Number: US-VERTEX PHARMACEUTICALS INC.-AE-2012-002706

PATIENT
  Sex: Male

DRUGS (12)
  1. RIBAVIRIN [Concomitant]
     Indication: HEPATITIS C
     Dates: start: 20120223
  2. LYRICA [Concomitant]
  3. LISINOPRIL [Concomitant]
  4. COLCHICINE [Concomitant]
  5. FOLIC ACID [Concomitant]
  6. INCIVEK [Suspect]
     Indication: HEPATITIS C
     Route: 048
     Dates: end: 20120223
  7. NORTRIPTYLINE HCL [Concomitant]
  8. NAPROXEN (ALEVE) [Concomitant]
  9. PROCRIT [Concomitant]
  10. IBUPROFEN (ADVIL) [Concomitant]
  11. PEGASYS [Concomitant]
     Indication: HEPATITIS C
  12. FERROUS SULFATE TAB [Concomitant]

REACTIONS (9)
  - FATIGUE [None]
  - RASH ERYTHEMATOUS [None]
  - DEHYDRATION [None]
  - BLOOD URIC ACID INCREASED [None]
  - RENAL FAILURE ACUTE [None]
  - PRURITUS [None]
  - WEIGHT DECREASED [None]
  - EXCORIATION [None]
  - PNEUMONIA [None]
